FAERS Safety Report 17261672 (Version 2)
Quarter: 2020Q1

REPORT INFORMATION
  Report Type: Spontaneous
  Country: US (occurrence: US)
  Receive Date: 20200113
  Receipt Date: 20200211
  Transmission Date: 20200409
  Serious: Yes (Other)
  Sender: FDA-Public Use
  Company Number: US-LUPIN PHARMACEUTICALS INC.-2020-00018

PATIENT
  Age: 57 Year

DRUGS (5)
  1. SILDENAFIL. [Interacting]
     Active Substance: SILDENAFIL
     Dosage: 20 MILLIGRAM, TID
     Route: 065
  2. SILDENAFIL. [Suspect]
     Active Substance: SILDENAFIL
     Indication: PULMONARY ARTERIAL HYPERTENSION
     Dosage: 20 MILLIGRAM, TID
     Route: 065
  3. BOSENTAN. [Concomitant]
     Active Substance: BOSENTAN
     Indication: PRODUCT USED FOR UNKNOWN INDICATION
     Dosage: 250 MILLIGRAM, QD
     Route: 065
  4. SILDENAFIL. [Interacting]
     Active Substance: SILDENAFIL
     Dosage: 10 MILLIGRAM, TID
     Route: 065
  5. COBICISTAT;ELVITEGRAVIR;EMTRICITABINE;TENOFOVIR DISOPROXIL FUMARATE [Interacting]
     Active Substance: COBICISTAT\ELVITEGRAVIR\EMTRICITABINE\TENOFOVIR DISOPROXIL FUMARATE
     Indication: HIV INFECTION
     Dosage: UNK UNK, QD (ELVITEGRAVIR 150 MG; COBICISTAT 150 MG, EMTRICITABINE 200 MG; TENOFOVIR 300 MG)
     Route: 065

REACTIONS (2)
  - Hypotension [Recovered/Resolved]
  - Drug interaction [Unknown]
